FAERS Safety Report 4998245-5 (Version None)
Quarter: 2006Q2

REPORT INFORMATION
  Report Type: 
  Country: None (occurrence: None)
  Receive Date: 20060508
  Receipt Date: 20060428
  Transmission Date: 20061013
  Serious: No
  Sender: FDA-Public Use
  Company Number: 06H-163-0307832-00

PATIENT
  Sex: Female

DRUGS (3)
  1. FENTANYL CITRATE [Suspect]
     Indication: ANALGESIC EFFECT
     Dosage: ^2 TO 3/10THS OF A CC^, ONCE, INTRATHECAL
     Route: 037
     Dates: start: 20060401, end: 20060401
  2. MORPHINE SULFATE 1MG/ML INJECTION, PRESERV  FREE [Suspect]
     Indication: ANALGESIC EFFECT
     Dosage: ^4/10THS OF A CC^, ONCE, INTRATHECAL
     Route: 037
     Dates: start: 20060401, end: 20060401
  3. 7.5% MARCAINE [Concomitant]

REACTIONS (5)
  - DRUG EXPOSURE DURING PREGNANCY [None]
  - NAUSEA [None]
  - POSTPARTUM DISORDER [None]
  - PRURITUS [None]
  - VOMITING [None]
